FAERS Safety Report 10049659 (Version 3)
Quarter: 2014Q2

REPORT INFORMATION
  Report Type: Spontaneous
  Country: RO (occurrence: RO)
  Receive Date: 20140401
  Receipt Date: 20140415
  Transmission Date: 20141212
  Serious: Yes (Hospitalization)
  Sender: FDA-Public Use
  Company Number: RO-JNJFOC-20140315307

PATIENT
  Age: 69 Year
  Sex: Female
  Weight: 68 kg

DRUGS (11)
  1. REMICADE [Suspect]
     Indication: RHEUMATOID ARTHRITIS
     Dosage: DOSE CALCULATED AS PER 3 MG/KG
     Route: 042
     Dates: start: 20081203, end: 20131002
  2. METHOTREXATE [Concomitant]
     Indication: RHEUMATOID ARTHRITIS
     Route: 048
     Dates: start: 20070328
  3. MICARDIS [Concomitant]
     Indication: HYPERTENSION
     Route: 048
     Dates: start: 20100101
  4. TERTENSIF [Concomitant]
     Indication: HYPERTENSION
     Route: 048
     Dates: start: 20100101
  5. SORTIS (ATORVASTATIN) [Concomitant]
     Route: 065
  6. SYMBICORT [Concomitant]
     Indication: ASTHMA
     Dosage: 80/4.5 MCG
     Route: 048
     Dates: start: 20101019
  7. FOLIC ACID [Concomitant]
     Indication: PROPHYLAXIS
     Dosage: 80/4.5 MCG
     Route: 065
     Dates: start: 20070830
  8. ALPHA D3 [Concomitant]
     Dosage: 80/4.5 MCG
     Route: 065
  9. CALCIUM LACTATE [Concomitant]
     Dosage: 80/4.5 MCG
     Route: 065
  10. NEXIUM [Concomitant]
     Indication: DYSPEPSIA
     Route: 048
     Dates: start: 20140301
  11. CHOLECALCIFEROL [Concomitant]
     Indication: OSTEOPOROSIS PROPHYLAXIS
     Route: 048

REACTIONS (2)
  - Adenocarcinoma gastric [Not Recovered/Not Resolved]
  - Gastric ulcer [Unknown]
